FAERS Safety Report 10222716 (Version 6)
Quarter: 2015Q4

REPORT INFORMATION
  Report Type: Report from Study
  Country: BR (occurrence: BR)
  Receive Date: 20140606
  Receipt Date: 20151027
  Transmission Date: 20160304
  Serious: Yes (Hospitalization, Other)
  Sender: FDA-Public Use
  Company Number: BR-ABBVIE-10P-020-0689050-00

PATIENT
  Age: 82 Year
  Sex: Female
  Weight: 33 kg

DRUGS (22)
  1. HUMIRA [Suspect]
     Active Substance: ADALIMUMAB
     Route: 058
     Dates: start: 20101015, end: 201508
  2. LACRIMA PLUS [Concomitant]
     Indication: EYE LUBRICATION THERAPY
     Dates: start: 2006
  3. DIPIVEFRINE [Concomitant]
     Indication: EYE LUBRICATION THERAPY
     Dates: start: 201006
  4. COLLYRIUM [Concomitant]
     Indication: EYE DISCHARGE
     Dosage: OCULAR TOPICAL SOLUTION, ONE DROP IN EACH EYE EVERY 4 HOURS
     Dates: start: 1995
  5. ALENDRONATE [Concomitant]
     Active Substance: ALENDRONATE SODIUM
     Indication: BLOOD PRESSURE ABNORMAL
     Route: 048
  6. HUMIRA [Suspect]
     Active Substance: ADALIMUMAB
     Indication: RHEUMATOID ARTHRITIS
     Route: 058
     Dates: start: 20091201
  7. FRESH TEARS [Concomitant]
     Indication: EYE LUBRICATION THERAPY
  8. NIFEDIPINE. [Concomitant]
     Active Substance: NIFEDIPINE
     Indication: HYPERTENSION
     Route: 048
     Dates: start: 2008
  9. NIFEDIPINE. [Concomitant]
     Active Substance: NIFEDIPINE
     Indication: BLOOD PRESSURE ABNORMAL
     Route: 048
  10. NIFEDIPINA [Concomitant]
     Active Substance: NIFEDIPINE
     Indication: HYPERTENSION
     Route: 048
     Dates: start: 2012
  11. ALENDRONATE [Concomitant]
     Active Substance: ALENDRONATE SODIUM
     Indication: MINERAL SUPPLEMENTATION
  12. HUMIRA [Suspect]
     Active Substance: ADALIMUMAB
     Route: 058
     Dates: start: 2015
  13. TIMOLOL. [Concomitant]
     Active Substance: TIMOLOL
     Indication: EYE LUBRICATION THERAPY
     Dates: start: 2006
  14. DEPURA [Concomitant]
     Active Substance: CHOLECALCIFEROL
     Indication: OSTEOPOROSIS
     Route: 048
  15. COLLYRIUM [Concomitant]
     Indication: EYE IRRITATION
  16. RISEDRONATE [Concomitant]
     Active Substance: RISEDRONATE SODIUM
     Indication: RHEUMATOID ARTHRITIS
     Route: 048
  17. RISEDRONATE [Concomitant]
     Active Substance: RISEDRONATE SODIUM
     Indication: MINERAL SUPPLEMENTATION
  18. RISEDRONATE [Concomitant]
     Active Substance: RISEDRONATE SODIUM
     Indication: RHEUMATIC DISORDER
  19. CALCIFLEX [Concomitant]
     Indication: OSTEOPOROSIS
     Dates: start: 201102
  20. EPITEGEL [Concomitant]
     Indication: EYE LUBRICATION THERAPY
     Dates: start: 201006
  21. REDRONATO [Concomitant]
     Indication: RHEUMATIC DISORDER
     Route: 048
  22. ALENDRONATE [Concomitant]
     Active Substance: ALENDRONATE SODIUM
     Indication: RHEUMATIC DISORDER

REACTIONS (26)
  - Immunodeficiency [Unknown]
  - Urinary tract infection [Recovered/Resolved]
  - Eye infection [Recovering/Resolving]
  - Dysphagia [Recovered/Resolved]
  - Loss of consciousness [Recovered/Resolved]
  - Injection site erythema [Recovered/Resolved]
  - Oral disorder [Recovered/Resolved]
  - Emphysema [Recovered/Resolved]
  - Malaise [Recovered/Resolved]
  - Injection site vesicles [Recovered/Resolved]
  - Decreased appetite [Recovered/Resolved]
  - Diabetes mellitus [Recovered/Resolved]
  - Blood glucose decreased [Recovered/Resolved]
  - Injection site haematoma [Recovered/Resolved]
  - Urinary tract infection [Recovered/Resolved]
  - Urinary tract infection [Recovered/Resolved]
  - Blood glucose increased [Recovered/Resolved]
  - Pneumonia [Recovered/Resolved]
  - Pulmonary hypertension [Not Recovered/Not Resolved]
  - Hypotension [Recovered/Resolved]
  - Injection site swelling [Recovered/Resolved]
  - Pneumonia [Recovered/Resolved]
  - Pneumonia [Recovered/Resolved]
  - Injection site pain [Not Recovered/Not Resolved]
  - Pneumonia [Recovered/Resolved]
  - Pneumonia [Recovered/Resolved]

NARRATIVE: CASE EVENT DATE: 2010
